FAERS Safety Report 18097261 (Version 2)
Quarter: 2020Q3

REPORT INFORMATION
  Report Type: Spontaneous
  Country: SK (occurrence: SK)
  Receive Date: 20200731
  Receipt Date: 20200902
  Transmission Date: 20201103
  Serious: Yes (Congenital Anomaly, Other)
  Sender: FDA-Public Use
  Company Number: NVSC2020SK208673

PATIENT
  Sex: Female

DRUGS (1)
  1. CARBAMAZEPINE. [Suspect]
     Active Substance: CARBAMAZEPINE
     Indication: FOETAL EXPOSURE DURING PREGNANCY
     Dosage: MATERNAL DOSE: 150 MG QD
     Route: 064

REACTIONS (7)
  - Aplasia cutis congenita [Unknown]
  - Premature baby [Unknown]
  - Low birth weight baby [Unknown]
  - Attention deficit hyperactivity disorder [Not Recovered/Not Resolved]
  - Febrile convulsion [Unknown]
  - Foetal exposure during pregnancy [Unknown]
  - Dyskinesia neonatal [Not Recovered/Not Resolved]
